FAERS Safety Report 23308849 (Version 1)
Quarter: 2023Q4

REPORT INFORMATION
  Report Type: Spontaneous
  Country: US (occurrence: None)
  Receive Date: 20231216
  Receipt Date: 20231216
  Transmission Date: 20240110
  Serious: Yes (Life-Threatening, Disabling)
  Sender: FDA-Public Use
  Company Number: None

PATIENT
  Age: 48 Year
  Sex: Male
  Weight: 80 kg

DRUGS (1)
  1. LEVOFLOXACIN [Suspect]
     Active Substance: LEVOFLOXACIN
     Indication: Urinary tract disorder
     Dosage: OTHER QUANTITY : 1 TABLET(S);?FREQUENCY : DAILY;?
     Route: 048
     Dates: start: 20220118, end: 20220120

REACTIONS (29)
  - Tendon discomfort [None]
  - Insomnia [None]
  - Plantar fasciitis [None]
  - Arthralgia [None]
  - Wheelchair user [None]
  - Tremor [None]
  - Joint swelling [None]
  - Tinnitus [None]
  - Palpitations [None]
  - Arrhythmia [None]
  - Neuropathy peripheral [None]
  - Fatigue [None]
  - Dry skin [None]
  - Dry eye [None]
  - Vitreous floaters [None]
  - Anxiety [None]
  - Muscle atrophy [None]
  - Lymphadenopathy [None]
  - Blood testosterone decreased [None]
  - Rash [None]
  - Vasculitis [None]
  - Muscle contractions involuntary [None]
  - Photopsia [None]
  - Abnormal dreams [None]
  - Sleep apnoea syndrome [None]
  - Brain fog [None]
  - Confusional state [None]
  - Post-traumatic stress disorder [None]
  - Economic problem [None]

NARRATIVE: CASE EVENT DATE: 20220120
